FAERS Safety Report 8953335 (Version 1)
Quarter: 2012Q4

REPORT INFORMATION
  Report Type: 
  Country: US (occurrence: US)
  Receive Date: 20121206
  Receipt Date: 20121206
  Transmission Date: 20130627
  Serious: No
  Sender: FDA-Public Use
  Company Number: US-PFIZER INC-2012303832

PATIENT
  Age: 80 Year
  Sex: Female
  Weight: 71.2 kg

DRUGS (7)
  1. PREMARIN [Suspect]
     Indication: VAGINAL DRYNESS
     Dosage: UNK, weekly
     Route: 067
     Dates: start: 2008
  2. PREMARIN [Suspect]
     Indication: POSTMENOPAUSAL SYMPTOMS
  3. PRAVASTATIN [Concomitant]
     Dosage: UNK
  4. OMEPRAZOLE [Concomitant]
     Dosage: UNK
  5. BENTYL [Concomitant]
     Dosage: UNK
  6. CALCIUM [Concomitant]
     Dosage: UNK
  7. LISINOPRIL [Concomitant]
     Indication: BLOOD PRESSURE HIGH
     Dosage: UNK

REACTIONS (1)
  - Blood test abnormal [Unknown]
